FAERS Safety Report 11962441 (Version 1)
Quarter: 2016Q1

REPORT INFORMATION
  Report Type: Spontaneous
  Country: PT (occurrence: PT)
  Receive Date: 20160126
  Receipt Date: 20160126
  Transmission Date: 20160526
  Serious: Yes (Other)
  Sender: FDA-Public Use
  Company Number: PT-ACTAVIS-2016-01125

PATIENT
  Age: 58 Year
  Sex: Male

DRUGS (1)
  1. DOCETAXEL ACTAVIS [Suspect]
     Active Substance: DOCETAXEL
     Indication: LUNG ADENOCARCINOMA
     Dosage: 150 MG, CYCLICAL (2? CICLO DE TRATAMENTO/ 2ND CYCLE OF TREATMENT)
     Route: 042
     Dates: start: 20151217, end: 20151217

REACTIONS (2)
  - Hypersensitivity [Recovered/Resolved]
  - Back pain [Recovered/Resolved]

NARRATIVE: CASE EVENT DATE: 20151217
